FAERS Safety Report 7722726-4 (Version None)
Quarter: 2011Q3

REPORT INFORMATION
  Report Type: 
  Country: None (occurrence: None)
  Receive Date: 20110831
  Receipt Date: 20110822
  Transmission Date: 20111222
  Serious: Yes (Other)
  Sender: FDA-Public Use
  Company Number: US-ASTRAZENECA-2011SE50504

PATIENT
  Age: 57 Year
  Sex: Male

DRUGS (16)
  1. DULERA ORAL INHALATION [Concomitant]
  2. LISINOPRIL [Concomitant]
  3. KLONOPIN [Concomitant]
     Dosage: AS REQUIRED
  4. ZANAFLEX [Concomitant]
  5. LASIX [Concomitant]
  6. GLIPIZIDE [Concomitant]
  7. PRAVASTATIN [Concomitant]
  8. VICODIN [Concomitant]
     Dosage: FOUR TIMES A DAY
  9. SYMBICORT [Concomitant]
     Indication: CHRONIC OBSTRUCTIVE PULMONARY DISEASE
     Dosage: 160/4.5 MCG DAILY
     Route: 055
  10. AMBIEN [Concomitant]
  11. VOLTAREN [Concomitant]
  12. SEROQUEL [Suspect]
     Indication: BIPOLAR DISORDER
     Route: 048
     Dates: start: 20050101
  13. LEVEMIR [Concomitant]
     Dosage: 48 UNITS DAILY
  14. EFFEXOR [Concomitant]
  15. METOPROLOL SUCCINATE EXTENDED RELEASE [Concomitant]
     Dosage: TWO TIMES A DAY
     Route: 048
  16. POTASSIUM CHLORIDE [Concomitant]

REACTIONS (3)
  - ATRIAL FIBRILLATION [None]
  - MYOCARDIAL INFARCTION [None]
  - DIABETES MELLITUS [None]
